FAERS Safety Report 6439093-9 (Version None)
Quarter: 2009Q4

REPORT INFORMATION
  Report Type: 
  Country: None (occurrence: None)
  Receive Date: 20091113
  Receipt Date: 20091110
  Transmission Date: 20100525
  Serious: Yes (Other)
  Sender: FDA-Public Use
  Company Number: FR-TEVA-210881ISR

PATIENT
  Age: 35 Year
  Sex: Male

DRUGS (3)
  1. PAROXETINE HCL [Suspect]
  2. PAROXETINE HCL [Interacting]
  3. ADRAFINIL [Interacting]

REACTIONS (2)
  - DRUG INTERACTION [None]
  - THERAPEUTIC AGENT TOXICITY [None]
